FAERS Safety Report 16410550 (Version 1)
Quarter: 2019Q2

REPORT INFORMATION
  Report Type: Spontaneous
  Country: US (occurrence: US)
  Receive Date: 20190610
  Receipt Date: 20190610
  Transmission Date: 20190711
  Serious: Yes (Other)
  Sender: FDA-Public Use
  Company Number: US-GLAXOSMITHKLINE-US2019100874

PATIENT
  Age: 65 Year
  Sex: Female

DRUGS (2)
  1. SENSODYNE REPAIR AND PROTECT WHITENING [Suspect]
     Active Substance: STANNOUS FLUORIDE
     Indication: DENTAL CLEANING
     Dosage: 1 UNK, BID
     Route: 004
  2. SENSODYNE REPAIR AND PROTECT WHITENING [Suspect]
     Active Substance: STANNOUS FLUORIDE
     Indication: DENTAL CLEANING
     Dosage: UNK UNK, BID

REACTIONS (5)
  - Stomatitis [Recovered/Resolved]
  - Oral bacterial infection [Recovered/Resolved]
  - Neoplasm [Recovered/Resolved]
  - Gingival discomfort [Recovered/Resolved]
  - Gingival pain [Recovered/Resolved]
